FAERS Safety Report 7788376-9 (Version None)
Quarter: 2011Q3

REPORT INFORMATION
  Report Type: 
  Country: None (occurrence: None)
  Receive Date: 20110930
  Receipt Date: 20110919
  Transmission Date: 20111222
  Serious: Yes (Hospitalization)
  Sender: FDA-Public Use
  Company Number: CA-JNJFOC-20110701994

PATIENT
  Sex: Male
  Weight: 80.6 kg

DRUGS (11)
  1. ZOPLICONE [Concomitant]
     Dosage: AT BEDTIME
     Route: 065
  2. EXTRA STRENGTH TYLENOL [Concomitant]
     Route: 065
  3. RABEPRAZOLE SODIUM [Concomitant]
     Route: 065
  4. METHOTREXATE [Concomitant]
     Route: 065
  5. TERBINAFINE HCL [Concomitant]
     Route: 065
  6. NAPROXEN [Concomitant]
     Route: 065
  7. REMICADE [Suspect]
     Indication: RHEUMATOID ARTHRITIS
     Route: 042
     Dates: start: 20110609
  8. REMICADE [Suspect]
     Dosage: 41ST INFUSION
     Route: 042
     Dates: start: 20110919
  9. REMICADE [Suspect]
     Route: 042
     Dates: start: 20070201
  10. PREDNISONE [Concomitant]
     Route: 048
  11. HORMONES NOS [Concomitant]
     Route: 050

REACTIONS (1)
  - SPINAL LAMINECTOMY [None]
